FAERS Safety Report 5668722-2 (Version None)
Quarter: 2008Q1

REPORT INFORMATION
  Report Type: 
  Country: None (occurrence: None)
  Receive Date: 20080311
  Receipt Date: 20080311
  Transmission Date: 20080703
  Serious: Yes (Hospitalization)
  Sender: FDA-Public Use
  Company Number: None

PATIENT
  Age: 54 Year
  Sex: Male

DRUGS (1)
  1. CEFTRIAXONE [Suspect]
     Indication: CELLULITIS
     Dates: start: 20070710, end: 20070715

REACTIONS (3)
  - ERYTHEMA MULTIFORME [None]
  - RASH [None]
  - SKIN EXFOLIATION [None]
